FAERS Safety Report 16934821 (Version 2)
Quarter: 2020Q2

REPORT INFORMATION
  Report Type: Report from Study
  Country: US (occurrence: US)
  Receive Date: 20191018
  Receipt Date: 20200602
  Transmission Date: 20200713
  Serious: Yes (Hospitalization, Other)
  Sender: FDA-Public Use
  Company Number: US-ASPEN-GLO2019US010631

PATIENT
  Age: 16 Year
  Sex: Female
  Weight: 65.1 kg

DRUGS (9)
  1. RUXOLITINIB [Suspect]
     Active Substance: RUXOLITINIB
     Indication: B PRECURSOR TYPE ACUTE LEUKAEMIA
     Dosage: 70 MG, BID
     Route: 048
     Dates: start: 20170313
  2. RUXOLITINIB [Suspect]
     Active Substance: RUXOLITINIB
     Dosage: UNK
     Route: 048
     Dates: start: 20170925
  3. TIOGUANINE [Suspect]
     Active Substance: THIOGUANINE ANHYDROUS
     Indication: B PRECURSOR TYPE ACUTE LEUKAEMIA
     Dosage: 100 MG NIGHTLY, MON - FRI 1 DOSE DAILY
     Route: 048
     Dates: start: 20170918
  4. DOXORUBICIN [Suspect]
     Active Substance: DOXORUBICIN
     Indication: B PRECURSOR TYPE ACUTE LEUKAEMIA
     Dosage: 45 MG, DAYS 1, 8, 15.
     Route: 042
     Dates: start: 20170731
  5. METHOTREXATE. [Suspect]
     Active Substance: METHOTREXATE
     Indication: B PRECURSOR TYPE ACUTE LEUKAEMIA
     Dosage: 15 MG, UNK
     Route: 037
     Dates: start: 20190918
  6. TIOGUANINE [Suspect]
     Active Substance: THIOGUANINE ANHYDROUS
     Dosage: 120 MG NIGHTLY, SAT - SUN FOR 14 DAYS
     Route: 048
     Dates: start: 20170918
  7. CYCLOPHOSPHAMIDE. [Suspect]
     Active Substance: CYCLOPHOSPHAMIDE
     Indication: B PRECURSOR TYPE ACUTE LEUKAEMIA
     Dosage: 1780 MG, 1 DOSAGE TOTAL
     Route: 042
     Dates: start: 20170313
  8. DEXAMETHASONE. [Suspect]
     Active Substance: DEXAMETHASONE
     Indication: B PRECURSOR TYPE ACUTE LEUKAEMIA
     Dosage: 9 MG, BID
     Route: 048
     Dates: start: 20170731
  9. CYTARABINE. [Suspect]
     Active Substance: CYTARABINE
     Indication: B PRECURSOR TYPE ACUTE LEUKAEMIA
     Dosage: 135 MG, QD FOR 4 DAYS
     Route: 042
     Dates: start: 20170313

REACTIONS (4)
  - Pneumonia [Recovering/Resolving]
  - Haemoptysis [Recovered/Resolved]
  - Lower respiratory tract infection fungal [Recovering/Resolving]
  - Pulmonary haemorrhage [Recovered/Resolved]

NARRATIVE: CASE EVENT DATE: 20170912
